FAERS Safety Report 10184929 (Version 1)
Quarter: 2014Q2

REPORT INFORMATION
  Report Type: Spontaneous
  Country: US (occurrence: None)
  Receive Date: 20140519
  Receipt Date: 20140519
  Transmission Date: 20141212
  Serious: Yes (Death)
  Sender: FDA-Public Use
  Company Number: UNT-2014-000145

PATIENT
  Age: 85 Year
  Sex: Female
  Weight: 44 kg

DRUGS (2)
  1. REMODULIN [Suspect]
     Indication: PULMONARY ARTERIAL HYPERTENSION
     Dosage: 0.097 UG/KG/MIN, CONTINUING, IV DRIP
     Route: 041
     Dates: start: 20090401
  2. COUMADIN (WARFARIN SODIUM) [Concomitant]

REACTIONS (3)
  - Pulmonary arterial hypertension [None]
  - Disease progression [None]
  - General physical health deterioration [None]
